FAERS Safety Report 6296967-X (Version None)
Quarter: 2009Q3

REPORT INFORMATION
  Report Type: 
  Country: None (occurrence: None)
  Receive Date: 20090804
  Receipt Date: 20090723
  Transmission Date: 20100115
  Serious: Yes (Other)
  Sender: FDA-Public Use
  Company Number: FR-ELI_LILLY_AND_COMPANY-FR200906005479

PATIENT
  Age: 55 Year
  Sex: Female

DRUGS (5)
  1. CYMBALTA [Suspect]
     Indication: DEPRESSION
     Dosage: 60 MG, DAILY (1/D)
     Route: 048
     Dates: start: 20090101, end: 20090628
  2. CYMBALTA [Suspect]
     Dosage: 30 MG, DAILY (1/D)
     Route: 048
     Dates: start: 20090629
  3. DEPAKOTE [Concomitant]
     Indication: MOOD SWINGS
     Dosage: 600 MG, DAILY (1/D)
     Route: 048
     Dates: start: 20090301
  4. RIVOTRIL [Concomitant]
     Dosage: UNK, UNKNOWN
     Route: 065
  5. IMOVANE [Concomitant]
     Dosage: UNK, UNKNOWN
     Route: 065

REACTIONS (1)
  - TACHYCARDIA PAROXYSMAL [None]
